FAERS Safety Report 7242033-6 (Version None)
Quarter: 2011Q1

REPORT INFORMATION
  Report Type: 
  Country: None (occurrence: None)
  Receive Date: 20110124
  Receipt Date: 20110117
  Transmission Date: 20110831
  Serious: Yes (Other)
  Sender: FDA-Public Use
  Company Number: US-US-EMD SERONO, INC.-7034507

PATIENT
  Sex: Female
  Weight: 64 kg

DRUGS (3)
  1. MULTI-VITAMIN [Concomitant]
     Route: 048
  2. REBIF [Suspect]
     Indication: MULTIPLE SCLEROSIS
     Route: 058
     Dates: start: 20100101
  3. REBIF [Suspect]
     Route: 058
     Dates: start: 20100222

REACTIONS (3)
  - BREAST CANCER [None]
  - INJECTION SITE NODULE [None]
  - INJECTION SITE HAEMORRHAGE [None]
